FAERS Safety Report 16091199 (Version 1)
Quarter: 2019Q1

REPORT INFORMATION
  Report Type: Other
  Country: GB (occurrence: GB)
  Receive Date: 20190319
  Receipt Date: 20190319
  Transmission Date: 20190418
  Serious: Yes (Disabling)
  Sender: FDA-Public Use
  Company Number: GB-HERITAGE PHARMACEUTICALS-2019HTG00090

PATIENT
  Age: 55 Year
  Sex: Female

DRUGS (5)
  1. KETOPROFEN. [Suspect]
     Active Substance: KETOPROFEN
     Dosage: 200 MG, 1X/DAY
     Dates: start: 20190211
  2. CO-DYDRAMOL [Concomitant]
     Active Substance: ACETAMINOPHEN\DIHYDROCODEINE
     Dosage: 2 DOSAGE UNITS, UP TO 4X/DAY AS REQUIRED
     Dates: start: 20180201
  3. MOMETASONE [Concomitant]
     Active Substance: MOMETASONE
     Dosage: 2 DOSAGE UNITS, 1X/DAY
     Dates: start: 20180201
  4. HYPROMELLOSE [Concomitant]
     Active Substance: HYPROMELLOSES
     Dosage: 1 GTT, UP TO 4X/DAY AS REQUIRED
     Dates: start: 20180201
  5. MOVICOL [Concomitant]
     Active Substance: POLYETHYLENE GLYCOL 3350\POTASSIUM CHLORIDE\SODIUM BICARBONATE\SODIUM CHLORIDE
     Dosage: UNK, AS DIRECTED
     Dates: start: 20190122

REACTIONS (2)
  - Abdominal pain upper [Recovered/Resolved]
  - Chromaturia [Unknown]

NARRATIVE: CASE EVENT DATE: 20190219
